FAERS Safety Report 25404719 (Version 1)
Quarter: 2025Q2

REPORT INFORMATION
  Report Type: Spontaneous
  Country: JP (occurrence: JP)
  Receive Date: 20250606
  Receipt Date: 20250606
  Transmission Date: 20250716
  Serious: Yes (Hospitalization)
  Sender: MERCK SHARP & DOHME LLC
  Company Number: None

PATIENT
  Age: 38 Year
  Sex: Male
  Weight: 71.4 kg

DRUGS (2)
  1. KEYTRUDA [Suspect]
     Active Substance: PEMBROLIZUMAB
     Indication: Renal cancer stage IV
     Route: 041
     Dates: start: 20230816, end: 20240302
  2. LENVIMA [Suspect]
     Active Substance: LENVATINIB
     Indication: Renal cancer stage IV
     Route: 048
     Dates: start: 20230816, end: 20240314

REACTIONS (2)
  - Enteritis infectious [Recovered/Resolved]
  - Immune-mediated enterocolitis [Recovered/Resolved]

NARRATIVE: CASE EVENT DATE: 20240315
